FAERS Safety Report 13411770 (Version 1)
Quarter: 2017Q2

REPORT INFORMATION
  Report Type: Spontaneous
  Country: US (occurrence: US)
  Receive Date: 20170406
  Receipt Date: 20170406
  Transmission Date: 20170830
  Serious: No
  Sender: FDA-Public Use
  Company Number: US-JNJFOC-20161008996

PATIENT
  Sex: Male

DRUGS (4)
  1. RISPERDAL [Suspect]
     Active Substance: RISPERIDONE
     Indication: DEPRESSION
     Dosage: 1 MG - 2MG
     Route: 048
     Dates: start: 20071203, end: 20080717
  2. RISPERDAL [Suspect]
     Active Substance: RISPERIDONE
     Indication: MANIA
     Dosage: 1 MG - 2MG
     Route: 048
     Dates: start: 20071203, end: 20080717
  3. RISPERDAL [Suspect]
     Active Substance: RISPERIDONE
     Indication: MOOD SWINGS
     Dosage: 1 MG - 2MG
     Route: 048
     Dates: start: 20071203, end: 20080717
  4. RISPERDAL [Suspect]
     Active Substance: RISPERIDONE
     Indication: BIPOLAR DISORDER
     Dosage: 1 MG - 2MG
     Route: 048
     Dates: start: 20071203, end: 20080717

REACTIONS (2)
  - Emotional disorder [Unknown]
  - Gynaecomastia [Unknown]
